FAERS Safety Report 5031139-8 (Version None)
Quarter: 2006Q2

REPORT INFORMATION
  Report Type: 
  Country: None (occurrence: None)
  Receive Date: 20060621
  Receipt Date: 20060606
  Transmission Date: 20061013
  Serious: Yes (Hospitalization, Other)
  Sender: FDA-Public Use
  Company Number: US-AMGEN-STX182033

PATIENT
  Sex: Male

DRUGS (2)
  1. ENBREL [Suspect]
     Indication: RHEUMATOID ARTHRITIS
     Route: 058
     Dates: start: 20030407
  2. UNSPECIFIED MEDICATION [Concomitant]

REACTIONS (8)
  - CEREBROVASCULAR ACCIDENT [None]
  - COLOSTOMY CLOSURE [None]
  - CONDITION AGGRAVATED [None]
  - DRUG HYPERSENSITIVITY [None]
  - HIP ARTHROPLASTY [None]
  - LARGE INTESTINE PERFORATION [None]
  - PLATELET COUNT INCREASED [None]
  - RHEUMATOID ARTHRITIS [None]
